APPROVED DRUG PRODUCT: DIFLORASONE DIACETATE
Active Ingredient: DIFLORASONE DIACETATE
Strength: 0.05%
Dosage Form/Route: CREAM;TOPICAL
Application: A075187 | Product #001
Applicant: AVONDALE PHARMACEUTICALS LLC
Approved: Mar 30, 1998 | RLD: No | RS: No | Type: DISCN